FAERS Safety Report 8241339-1 (Version None)
Quarter: 2012Q1

REPORT INFORMATION
  Report Type: 
  Country: None (occurrence: None)
  Receive Date: 20120328
  Receipt Date: 20120321
  Transmission Date: 20120608
  Serious: Yes (Other)
  Sender: FDA-Public Use
  Company Number: US-ABBOTT-12P-163-0917278-00

PATIENT
  Sex: Male
  Weight: 65.83 kg

DRUGS (4)
  1. HUMIRA [Suspect]
     Route: 058
     Dates: start: 20110501, end: 20110601
  2. HUMIRA [Suspect]
     Indication: CROHN'S DISEASE
     Route: 058
     Dates: start: 20080301, end: 20110501
  3. HUMIRA [Suspect]
     Route: 058
     Dates: start: 20110801
  4. METHOTREXATE [Concomitant]
     Indication: CROHN'S DISEASE
     Route: 048
     Dates: start: 20120201

REACTIONS (6)
  - DIARRHOEA [None]
  - ILEAL ULCER [None]
  - WEIGHT DECREASED [None]
  - LARGE INTESTINAL ULCER [None]
  - INTESTINAL ULCER [None]
  - OFF LABEL USE [None]
